FAERS Safety Report 16427390 (Version 1)
Quarter: 2019Q2

REPORT INFORMATION
  Report Type: Spontaneous
  Country: GB (occurrence: GB)
  Receive Date: 20190613
  Receipt Date: 20190613
  Transmission Date: 20190711
  Serious: Yes (Other)
  Sender: FDA-Public Use
  Company Number: GB-ASTRAZENECA-2019SE83549

PATIENT
  Age: 62 Year
  Sex: Female
  Weight: 112 kg

DRUGS (20)
  1. LORATADINE. [Concomitant]
     Active Substance: LORATADINE
     Dates: start: 20170302
  2. SIMVASTATIN. [Concomitant]
     Active Substance: SIMVASTATIN
     Dates: start: 20170215
  3. PARACETAMOL [Concomitant]
     Active Substance: ACETAMINOPHEN
     Dosage: 500 MG 1 TO 2 CAPSULES UP TO FOUR TIMES DAILY AS REQUIRED
     Dates: start: 20150707
  4. DICLOFENAC [Concomitant]
     Active Substance: DICLOFENAC
     Dates: start: 20170302
  5. RAMIPRIL. [Concomitant]
     Active Substance: RAMIPRIL
     Dates: start: 20170302
  6. MOMETASONE [Concomitant]
     Active Substance: MOMETASONE
     Dosage: TO BE APPLIED AT NIGHT
     Dates: start: 20170504
  7. DAPAGLIFLOZIN. [Suspect]
     Active Substance: DAPAGLIFLOZIN
     Dosage: 10.0MG UNKNOWN
     Route: 048
  8. ALPHOSYL [Concomitant]
     Dosage: USE DAILY
     Dates: start: 20160628
  9. TRAMADOL. [Concomitant]
     Active Substance: TRAMADOL
     Dosage: 50 MG 1 OR 2 CAPSULES 4 HOURLY. MAXIMUM 8 PER 24 HOURS
     Dates: start: 20170302
  10. METFORMIN [Concomitant]
     Active Substance: METFORMIN HYDROCHLORIDE
     Dates: start: 20170215
  11. LACTULOSE. [Concomitant]
     Active Substance: LACTULOSE
     Dosage: 3.1-3.7 G/5ML 5 - 15 ML TWICE A DAY AS REQUIRED
     Dates: start: 20151104
  12. CANESTEN [Concomitant]
     Active Substance: CLOTRIMAZOLE
     Indication: CANDIDA INFECTION
     Dates: start: 20170504
  13. CASSIA [Concomitant]
     Indication: CONSTIPATION
     Dates: start: 20151104
  14. GABAPENTIN. [Concomitant]
     Active Substance: GABAPENTIN
     Dates: start: 20170302
  15. MAGNESIUM HYDROXIDE. [Concomitant]
     Active Substance: MAGNESIUM HYDROXIDE
     Indication: CONSTIPATION
     Dosage: 10 ML TWICE A DAY AS REQUIRED FOR CONSTIPATION
     Dates: start: 20151104
  16. SITAGLIPTIN [Concomitant]
     Active Substance: SITAGLIPTIN
     Dates: start: 20170215
  17. ORLISTAT. [Concomitant]
     Active Substance: ORLISTAT
     Dates: start: 20170302
  18. CITALOPRAM [Concomitant]
     Active Substance: CITALOPRAM HYDROBROMIDE
     Dates: start: 20170302
  19. EPADERM [Concomitant]
     Active Substance: MINERAL OIL\PETROLATUM\WAX, EMULSIFYING
     Dates: start: 20170106
  20. BECONASE AQ [Concomitant]
     Active Substance: BECLOMETHASONE DIPROPIONATE MONOHYDRATE
     Dosage: 2 DF, BD, EACH NOSTRIL INITIALLY, MAY REDUCE TO 1 DF BD, IF SYMPTOMS CONTROLLED.
     Dates: start: 20170302

REACTIONS (1)
  - Vulvovaginal discomfort [Not Recovered/Not Resolved]

NARRATIVE: CASE EVENT DATE: 20160725
